FAERS Safety Report 4398752-2 (Version None)
Quarter: 2004Q3

REPORT INFORMATION
  Report Type: 
  Country: None (occurrence: None)
  Receive Date: 20040712
  Receipt Date: 20040629
  Transmission Date: 20050211
  Serious: Yes (Other)
  Sender: FDA-Public Use
  Company Number: 2004-DE-03604GD

PATIENT
  Age: 5 Month
  Sex: 0

DRUGS (4)
  1. THEOPHYLLINE [Suspect]
     Indication: ASTHMA
     Dosage: 18,6  MG/KG, PO
     Route: 048
  2. AMINOPHYLLIN [Suspect]
     Indication: ASTHMA
     Dosage: 50 MG, PR
     Route: 054
  3. PEMIROLAST POTASSIUM (PEMIROLAST POTASSIUM) [Suspect]
     Indication: ASTHMA
  4. TIPEPIDINE HIBENZATE (TIPEPIDINE HIBENZATE) (BROMHEXINE-HCL) [Concomitant]

REACTIONS (2)
  - CONVULSION [None]
  - RESPIRATORY FAILURE [None]
